FAERS Safety Report 12521535 (Version 3)
Quarter: 2016Q4

REPORT INFORMATION
  Report Type: Report from Study
  Country: JP (occurrence: JP)
  Receive Date: 20160701
  Receipt Date: 20161005
  Transmission Date: 20170207
  Serious: Yes (Hospitalization)
  Sender: FDA-Public Use
  Company Number: JP-SA-2016SA120781

PATIENT
  Age: 22 Year
  Sex: Male
  Weight: 49.4 kg

DRUGS (9)
  1. MAGNESIUM OXIDE MOCHIDA [Concomitant]
     Route: 065
  2. ALFACALCIDOL [Concomitant]
     Active Substance: ALFACALCIDOL
     Route: 065
  3. CALCIUM LACTATE [Concomitant]
     Active Substance: CALCIUM LACTATE
     Route: 065
  4. CAPRELSA [Suspect]
     Active Substance: VANDETANIB
     Indication: THYROID CANCER
     Route: 048
     Dates: start: 20160622, end: 20160627
  5. ALFACALCIDOL [Concomitant]
     Active Substance: ALFACALCIDOL
     Route: 065
  6. THYRADIN-S [Concomitant]
     Active Substance: LEVOTHYROXINE
     Route: 065
  7. THYRADIN-S [Concomitant]
     Active Substance: LEVOTHYROXINE
     Route: 065
  8. MIYA-BM [Concomitant]
     Active Substance: CLOSTRIDIUM BUTYRICUM SPORES STRAIN M-55
     Route: 065
  9. CAPRELSA [Suspect]
     Active Substance: VANDETANIB
     Indication: THYROID CANCER
     Route: 048
     Dates: start: 20160614, end: 20160617

REACTIONS (4)
  - Loss of consciousness [Recovered/Resolved]
  - Seizure [Recovered/Resolved]
  - Seizure [Recovered/Resolved]
  - Loss of consciousness [Recovered/Resolved]

NARRATIVE: CASE EVENT DATE: 20160617
